FAERS Safety Report 6880174-3 (Version None)
Quarter: 2010Q3

REPORT INFORMATION
  Report Type: 
  Country: None (occurrence: None)
  Receive Date: 20100728
  Receipt Date: 20100430
  Transmission Date: 20110219
  Serious: Yes (Hospitalization)
  Sender: FDA-Public Use
  Company Number: US-BRISTOL-MYERS SQUIBB COMPANY-15031347

PATIENT
  Age: 4 Decade
  Sex: Female

DRUGS (1)
  1. SPRYCEL [Suspect]
     Indication: ACUTE LYMPHOCYTIC LEUKAEMIA

REACTIONS (3)
  - HAEMORRHAGE [None]
  - HAEMORRHAGE INTRACRANIAL [None]
  - WHITE BLOOD CELL COUNT DECREASED [None]
